FAERS Safety Report 20190092 (Version 2)
Quarter: 2022Q2

REPORT INFORMATION
  Report Type: Spontaneous
  Country: US (occurrence: US)
  Receive Date: 20211215
  Receipt Date: 20220630
  Transmission Date: 20220721
  Serious: Yes (Hospitalization)
  Sender: FDA-Public Use
  Company Number: US-PFIZER INC-202101723619

PATIENT
  Age: 71 Year
  Sex: Male
  Weight: 85.28 kg

DRUGS (1)
  1. VYNDAMAX [Suspect]
     Active Substance: TAFAMIDIS
     Indication: Cardiac amyloidosis
     Dosage: 61 MG, 1X/DAY (61MG AT NIGHT, BY MOUTH)
     Route: 048
     Dates: start: 2022

REACTIONS (4)
  - Cardiac disorder [Unknown]
  - Liver disorder [Unknown]
  - Dyspnoea [Unknown]
  - Cough [Unknown]
